FAERS Safety Report 7392444-3 (Version None)
Quarter: 2011Q2

REPORT INFORMATION
  Report Type: 
  Country: None (occurrence: None)
  Receive Date: 20110404
  Receipt Date: 20110330
  Transmission Date: 20111010
  Serious: Yes (Death)
  Sender: FDA-Public Use
  Company Number: GB-ASTRAZENECA-2011SE05086

PATIENT
  Age: 60 Year
  Sex: Female
  Weight: 65.1 kg

DRUGS (4)
  1. CODYDRAMOL [Concomitant]
     Indication: FIBROMYALGIA
     Route: 048
  2. BENDROFLUMETHIAZIDE [Concomitant]
     Indication: HYPERTENSION
     Route: 048
  3. SIMVASTATIN [Concomitant]
     Indication: HYPERCHOLESTEROLAEMIA
     Route: 048
  4. IRESSA [Suspect]
     Indication: NON-SMALL CELL LUNG CANCER
     Route: 048
     Dates: start: 20101215

REACTIONS (2)
  - INTERSTITIAL LUNG DISEASE [None]
  - BRONCHOPNEUMONIA [None]
